FAERS Safety Report 6356578-4 (Version None)
Quarter: 2009Q3

REPORT INFORMATION
  Report Type: 
  Country: None (occurrence: None)
  Receive Date: 20090911
  Receipt Date: 20090911
  Transmission Date: 20100115
  Serious: Yes (Other)
  Sender: FDA-Public Use
  Company Number: None

PATIENT
  Sex: Female

DRUGS (1)
  1. PURSENNID (NCH) (SENNA GLYCOSIDES (CA SALTS OF PURIFIED SENNA EXTRACT) [Suspect]
     Indication: CONSTIPATION
     Dosage: ORAL
     Route: 048

REACTIONS (1)
  - ILEUS [None]
